FAERS Safety Report 9216474 (Version 2)
Quarter: 2013Q2

REPORT INFORMATION
  Report Type: Spontaneous
  Country: RU (occurrence: RU)
  Receive Date: 20130408
  Receipt Date: 20130507
  Transmission Date: 20140414
  Serious: Yes (Hospitalization)
  Sender: FDA-Public Use
  Company Number: RU-ELI_LILLY_AND_COMPANY-RU201303009842

PATIENT
  Age: 76 Year
  Sex: Female

DRUGS (3)
  1. HUMULIN 30% REGULAR, 70% NPH [Suspect]
     Dosage: 15 IU, BID
     Dates: start: 20130320, end: 20130324
  2. HUMULIN REGULAR [Suspect]
     Dosage: UNK
  3. HUMULIN NPH [Suspect]
     Dosage: UNK

REACTIONS (6)
  - Blood glucose increased [Unknown]
  - Fear [Unknown]
  - Pruritus [Unknown]
  - Blood pressure increased [Unknown]
  - Diabetic complication [Not Recovered/Not Resolved]
  - Drug ineffective [Unknown]
